FAERS Safety Report 10406885 (Version 2)
Quarter: 2014Q3

REPORT INFORMATION
  Report Type: Spontaneous
  Country: FR (occurrence: FR)
  Receive Date: 20140825
  Receipt Date: 20140925
  Transmission Date: 20150326
  Serious: Yes (Hospitalization)
  Sender: FDA-Public Use
  Company Number: FR-TEVA-502392ISR

PATIENT
  Age: 44 Year
  Sex: Male

DRUGS (5)
  1. DUROGESIC [Suspect]
     Active Substance: FENTANYL
     Dosage: 37 MICROGRAM/ HOUR
  2. PECFENT [Suspect]
     Active Substance: FENTANYL CITRATE
     Indication: PRODUCT USED FOR UNKNOWN INDICATION
     Dosage: 8 DOSAGE FORMS DAILY; DOSAGE FORM: SPRAYING
     Dates: start: 2013
  3. DUROGESIC [Suspect]
     Active Substance: FENTANYL
     Indication: PRODUCT USED FOR UNKNOWN INDICATION
     Dosage: 35 MICROGRAM/ HOUR
     Dates: start: 2013
  4. PARACETAMOL [Concomitant]
     Active Substance: ACETAMINOPHEN
  5. ACTIQ [Suspect]
     Active Substance: FENTANYL CITRATE
     Indication: PRODUCT USED FOR UNKNOWN INDICATION
     Dosage: 4 DOSAGE FORMS DAILY;
     Route: 048
     Dates: start: 2013

REACTIONS (1)
  - Sleep apnoea syndrome [Not Recovered/Not Resolved]

NARRATIVE: CASE EVENT DATE: 2014
